FAERS Safety Report 5100347-X (Version None)
Quarter: 2006Q3

REPORT INFORMATION
  Report Type: 
  Country: None (occurrence: None)
  Receive Date: 20060731
  Receipt Date: 20060510
  Transmission Date: 20061208
  Serious: No
  Sender: FDA-Public Use
  Company Number: 2006PV014737

PATIENT
  Age: 70 Year
  Sex: Female
  Weight: 76.2043 kg

DRUGS (4)
  1. BYETTA [Suspect]
     Indication: DIABETES MELLITUS NON-INSULIN-DEPENDENT
     Dosage: 10 MCG;BID;SC, SEE IMAGE
     Route: 058
     Dates: start: 20050701, end: 20050801
  2. BYETTA [Suspect]
     Indication: DIABETES MELLITUS NON-INSULIN-DEPENDENT
     Dosage: 10 MCG;BID;SC, SEE IMAGE
     Route: 058
     Dates: start: 20050801
  3. METFORMIN HCL [Concomitant]
  4. CRESTOR [Concomitant]

REACTIONS (6)
  - ANOREXIA [None]
  - DYSGEUSIA [None]
  - HEPATIC ENZYME INCREASED [None]
  - NASOPHARYNGITIS [None]
  - UMBILICAL HERNIA [None]
  - WEIGHT DECREASED [None]
